FAERS Safety Report 4945819-3 (Version None)
Quarter: 2006Q1

REPORT INFORMATION
  Report Type: 
  Country: None (occurrence: None)
  Receive Date: 20060316
  Receipt Date: 20060308
  Transmission Date: 20060701
  Serious: Yes (Hospitalization)
  Sender: FDA-Public Use
  Company Number: 2006AC00425

PATIENT
  Age: 38 Year
  Sex: Male
  Weight: 100 kg

DRUGS (7)
  1. BUPIVACAINE [Suspect]
     Indication: LOCAL ANAESTHESIA
     Dosage: 0.5%
     Route: 053
  2. LISINOPRIL [Concomitant]
     Indication: HYPERTENSION
  3. MIDAZOLAM [Concomitant]
     Indication: SEDATION
     Route: 042
  4. FENTANYL [Concomitant]
     Indication: SEDATION
     Route: 042
  5. FENTANYL [Concomitant]
     Route: 042
  6. PROPOFOL [Concomitant]
     Indication: GENERAL ANAESTHESIA
     Route: 042
  7. SEVOFLURANE [Concomitant]
     Indication: MAINTENANCE OF ANAESTHESIA
     Dosage: 1% TO 2% IN 50:50 AIR/OXYGEN

REACTIONS (5)
  - BLOOD PRESSURE INCREASED [None]
  - DIZZINESS [None]
  - HICCUPS [None]
  - INSOMNIA [None]
  - NAUSEA [None]
